FAERS Safety Report 9122153 (Version 3)
Quarter: 2013Q2

REPORT INFORMATION
  Report Type: Spontaneous
  Country: US (occurrence: None)
  Receive Date: 20130125
  Receipt Date: 20130415
  Transmission Date: 20140414
  Serious: Yes (Hospitalization)
  Sender: FDA-Public Use
  Company Number: 2012US-004477

PATIENT
  Age: 23 Year
  Sex: Male

DRUGS (11)
  1. OMONTYS [Suspect]
     Indication: NEPHROGENIC ANAEMIA
     Route: 042
     Dates: start: 20121128, end: 20121128
  2. ACE INHIBITORS [Concomitant]
  3. HECTOROL (DOXERCALCIFEROL) [Concomitant]
  4. PEPTO BISMOL (BISMUTH SUBSALICYLATE) [Concomitant]
  5. HYPERTONIC  SALINE SOLUTION (SODIUM CHLORIDE) [Concomitant]
  6. LISINOPRIL (LISINOPRIL) [Concomitant]
  7. NEPHROVITE (ASCORBIC ACID, BIOTIN, CALCIUM PANTOTHENATE, CYANOCOBALAMIN, FOLIC ACID, NICOTINAMIDE, PYRIDOXINE HYDROCHLORIDE, RIBOFLAVIN, THIAMINE HYDROCHLORIDE) [Concomitant]
  8. PRAVASTATIN SODIUM (PRAVASTATIN SODIUM) [Concomitant]
  9. RENVELA (SEVELAMER CARBONATE) [Concomitant]
  10. SENSIPAR (CINACALCET HYDROCHLORIDE) [Concomitant]
  11. TYLENOL (PARACETAMOL) [Concomitant]

REACTIONS (15)
  - Anaphylactic reaction [None]
  - Malaise [None]
  - Heart rate decreased [None]
  - Incoherent [None]
  - Hypotension [None]
  - Nausea [None]
  - Angioedema [None]
  - Leukocytosis [None]
  - Loss of consciousness [None]
  - Dyspnoea [None]
  - Swollen tongue [None]
  - Urticaria [None]
  - Chills [None]
  - Hypothermia [None]
  - Tachycardia [None]
